FAERS Safety Report 16619979 (Version 1)
Quarter: 2019Q3

REPORT INFORMATION
  Report Type: Spontaneous
  Country: HR (occurrence: HR)
  Receive Date: 20190723
  Receipt Date: 20190723
  Transmission Date: 20191004
  Serious: Yes (Life-Threatening, Hospitalization, Other)
  Sender: FDA-Public Use
  Company Number: HR-JNJFOC-20190716924

PATIENT
  Age: 75 Year
  Sex: Female

DRUGS (1)
  1. RIVAROXABAN [Suspect]
     Active Substance: RIVAROXABAN
     Indication: ANTICOAGULANT THERAPY
     Dosage: 20 MG, UNK
     Route: 048
     Dates: start: 20190621, end: 20190624

REACTIONS (3)
  - Cerebral haemorrhage [Recovering/Resolving]
  - Hemiplegia [Recovering/Resolving]
  - Nervous system disorder [Recovering/Resolving]

NARRATIVE: CASE EVENT DATE: 20190621
